FAERS Safety Report 8979316 (Version 1)
Quarter: 2012Q4

REPORT INFORMATION
  Report Type: 
  Country: US (occurrence: US)
  Receive Date: 20121221
  Receipt Date: 20121221
  Transmission Date: 20130627
  Serious: Yes (Other)
  Sender: FDA-Public Use
  Company Number: US-ASTRAZENECA-2012SE93976

PATIENT
  Age: 82 Year
  Sex: Female

DRUGS (5)
  1. SYMBICORT [Suspect]
     Indication: EMPHYSEMA
     Dosage: 80/4.5, 2 PUFFS BID
     Route: 055
     Dates: start: 2010, end: 2011
  2. SYMBICORT [Suspect]
     Indication: EMPHYSEMA
     Dosage: 80/4.5, 2 PUFFS DAILY
     Route: 055
     Dates: start: 2011
  3. TOPROL XL [Suspect]
     Indication: STENT PLACEMENT
     Route: 048
     Dates: start: 2010
  4. ASA [Suspect]
     Indication: ANEURYSM
     Route: 048
     Dates: start: 2010
  5. CELEBREX [Suspect]
     Indication: PAIN
     Route: 048
     Dates: start: 201211

REACTIONS (11)
  - Aortic aneurysm [Unknown]
  - Spinal fracture [Unknown]
  - Chills [Not Recovered/Not Resolved]
  - Vomiting [Recovered/Resolved]
  - Rhinorrhoea [Not Recovered/Not Resolved]
  - Sinus congestion [Not Recovered/Not Resolved]
  - Alopecia [Unknown]
  - Confusional state [Recovered/Resolved]
  - Nervousness [Recovered/Resolved]
  - Drug effect increased [Recovered/Resolved]
  - Off label use [Unknown]
